FAERS Safety Report 8905621 (Version 1)
Quarter: 2012Q4

REPORT INFORMATION
  Report Type: 
  Country: CL (occurrence: CL)
  Receive Date: 20121113
  Receipt Date: 20121113
  Transmission Date: 20130627
  Serious: Yes (Death, Hospitalization)
  Sender: FDA-Public Use
  Company Number: CL-WATSON-2012-19260

PATIENT
  Age: 5 Year
  Sex: Female
  Weight: 23 kg

DRUGS (3)
  1. SODIUM VALPROATE (UNKNOWN) [Suspect]
     Indication: EPILEPSY
     Dosage: 32 mg/kg, UNK
     Route: 045
  2. SODIUM VALPROATE (UNKNOWN) [Suspect]
     Dosage: 45 UNK, UNK
     Route: 045
  3. MEROPENEM [Suspect]
     Indication: ENTEROBACTER INFECTION

REACTIONS (5)
  - Drug interaction [Fatal]
  - Drug level decreased [Fatal]
  - Enterobacter infection [Fatal]
  - Sepsis [Fatal]
  - Hypoxia [Fatal]
